FAERS Safety Report 12716578 (Version 1)
Quarter: 2016Q3

REPORT INFORMATION
  Report Type: Spontaneous
  Country: US (occurrence: US)
  Receive Date: 20160906
  Receipt Date: 20160906
  Transmission Date: 20161109
  Serious: No
  Sender: FDA-Public Use
  Company Number: US-PFIZER INC-2016413479

PATIENT
  Age: 55 Year
  Sex: Female
  Weight: 109 kg

DRUGS (8)
  1. METFORMIN [Concomitant]
     Active Substance: METFORMIN HYDROCHLORIDE
     Indication: DIABETES MELLITUS
     Dosage: 100 MG, 2X/DAY
     Route: 048
  2. METFORMIN [Concomitant]
     Active Substance: METFORMIN HYDROCHLORIDE
     Dosage: 100 MG, 2X/DAY
     Route: 048
     Dates: start: 201601
  3. LISINOPRIL. [Concomitant]
     Active Substance: LISINOPRIL
     Indication: HYPERTENSION
     Dosage: UNK UNK, 2X/DAY
     Route: 048
     Dates: start: 201601
  4. HUMULIN NOS [Concomitant]
     Active Substance: INSULIN HUMAN
     Indication: DIABETES MELLITUS
     Dosage: 30 IU, 2X/DAY (30 UNITS INJECTION TWICE A DAY)
     Dates: start: 201601
  5. LEVOTHYROXINE. [Concomitant]
     Active Substance: LEVOTHYROXINE
     Indication: HYPOTHYROIDISM
     Dosage: UNK UNK, 1X/DAY
     Route: 048
     Dates: start: 201601
  6. PRILOSEC [Concomitant]
     Active Substance: OMEPRAZOLE MAGNESIUM
     Indication: DYSPEPSIA
     Dosage: 40 MG, DAILY
     Route: 048
     Dates: start: 201601
  7. CARVEDILOL. [Concomitant]
     Active Substance: CARVEDILOL
     Indication: LIVER DISORDER
     Dosage: 12.5 MG, 2X/DAY
     Route: 048
     Dates: start: 201601
  8. LYRICA [Suspect]
     Active Substance: PREGABALIN
     Indication: DIABETIC NEUROPATHY
     Dosage: 50 MG, 2X/DAY
     Route: 048
     Dates: start: 20160802

REACTIONS (6)
  - Off label use [Unknown]
  - Hypersomnia [Not Recovered/Not Resolved]
  - Feeling cold [Recovered/Resolved]
  - Feeling drunk [Recovered/Resolved]
  - Diarrhoea [Recovering/Resolving]
  - Pain in extremity [Not Recovered/Not Resolved]

NARRATIVE: CASE EVENT DATE: 201608
